FAERS Safety Report 23639613 (Version 1)
Quarter: 2024Q1

REPORT INFORMATION
  Report Type: Other
  Country: DE (occurrence: None)
  Receive Date: 20240316
  Receipt Date: 20240316
  Transmission Date: 20240409
  Serious: No
  Sender: FDA-Public Use
  Company Number: DE-ROCHE-3527187

PATIENT
  Age: 30 Year
  Sex: Male

DRUGS (13)
  1. OCRELIZUMAB [Suspect]
     Active Substance: OCRELIZUMAB
     Indication: Relapsing multiple sclerosis
     Route: 042
     Dates: start: 20230309
  2. OCRELIZUMAB [Suspect]
     Active Substance: OCRELIZUMAB
     Route: 042
     Dates: start: 20230925
  3. AMITRIPTYLINE [Concomitant]
     Active Substance: AMITRIPTYLINE
     Indication: Cervicogenic headache
     Dosage: DOSE: 40?DOSE FREQUENCY: BID (TWICE A DAY)
     Route: 048
     Dates: start: 20221215, end: 20230123
  4. METAMIZOLE [Concomitant]
     Active Substance: METAMIZOLE
     Indication: Cervicogenic headache
     Dosage: DOSE: 500?DOSE FREQUENCY: PRN (AS NEEDED)
     Route: 048
     Dates: start: 20230323
  5. PREDNISOLONE [Concomitant]
     Active Substance: PREDNISOLONE
     Dosage: DOSE FREQUENCY: ONCE
     Route: 042
     Dates: start: 20230309, end: 20230309
  6. PREDNISOLONE [Concomitant]
     Active Substance: PREDNISOLONE
     Dosage: DOSE FREQUENCY: ONCE
     Route: 042
     Dates: start: 20230323, end: 20230323
  7. PREDNISOLONE [Concomitant]
     Active Substance: PREDNISOLONE
     Dosage: DOSE FREQUENCY: ONCE
     Route: 042
     Dates: start: 20230925, end: 20230925
  8. DIMETHINDENE MALEATE [Concomitant]
     Active Substance: DIMETHINDENE MALEATE
     Dosage: DOSE FREQUENCY: ONCE
     Route: 042
     Dates: start: 20230309, end: 20230309
  9. DIMETHINDENE MALEATE [Concomitant]
     Active Substance: DIMETHINDENE MALEATE
     Dosage: DOSE FREQUENCY: ONCE
     Route: 042
     Dates: start: 20230323, end: 20230323
  10. DIMETHINDENE MALEATE [Concomitant]
     Active Substance: DIMETHINDENE MALEATE
     Dosage: DOSE FREQUENCY: ONCE
     Route: 042
     Dates: start: 20230925, end: 20230925
  11. FAMOTIDINE [Concomitant]
     Active Substance: FAMOTIDINE
     Dosage: DOSE FREQUENCY: ONCE
     Route: 048
     Dates: start: 20230309, end: 20230309
  12. FAMOTIDINE [Concomitant]
     Active Substance: FAMOTIDINE
     Dosage: DOSE FREQUENCY: ONCE
     Route: 048
     Dates: start: 20230323, end: 20230323
  13. FAMOTIDINE [Concomitant]
     Active Substance: FAMOTIDINE
     Dosage: DOSE FREQUENCY: ONCE
     Route: 042
     Dates: start: 20230925, end: 20230925

REACTIONS (1)
  - Streptococcal infection [Recovered/Resolved]

NARRATIVE: CASE EVENT DATE: 20240229
